FAERS Safety Report 23153689 (Version 1)
Quarter: 2023Q4

REPORT INFORMATION
  Report Type: Spontaneous
  Country: US (occurrence: US)
  Receive Date: 20231107
  Receipt Date: 20231107
  Transmission Date: 20240110
  Serious: No
  Sender: FDA-Public Use
  Company Number: US-TEVA-2023-US-2938367

PATIENT
  Age: 44 Year
  Sex: Female
  Weight: 79.83 kg

DRUGS (2)
  1. AJOVY [Suspect]
     Active Substance: FREMANEZUMAB-VFRM
     Indication: Migraine
     Dosage: FORM STRENGTH: 225/1.5 MG/ML
     Route: 065
     Dates: start: 2023
  2. AJOVY [Suspect]
     Active Substance: FREMANEZUMAB-VFRM

REACTIONS (7)
  - Injection site erythema [Not Recovered/Not Resolved]
  - Injection site pruritus [Not Recovered/Not Resolved]
  - Injection site mass [Unknown]
  - Injection site induration [Unknown]
  - Injection site pain [Unknown]
  - Injection site rash [Unknown]
  - Injection site inflammation [Unknown]

NARRATIVE: CASE EVENT DATE: 20231001
